FAERS Safety Report 9011830 (Version 1)
Quarter: 2013Q1

REPORT INFORMATION
  Report Type: Spontaneous
  Country: US (occurrence: None)
  Receive Date: 20121228
  Receipt Date: 20121228
  Transmission Date: 20140127
  Serious: Yes (Other)
  Sender: FDA-Public Use
  Company Number: JPI-P-026791

PATIENT
  Age: 51 Year
  Sex: Male
  Weight: 102.06 kg

DRUGS (7)
  1. XYREM [Suspect]
     Indication: INSOMNIA
     Dosage: 9 GM (4.5 GM, 2 IN 1 D), ORAL
     Dates: start: 20090519
  2. CLONAZEPAM [Concomitant]
  3. DULOXETINE HYDROCHLORIDE [Concomitant]
  4. UNSPECIFIED STIMULANT [Concomitant]
  5. LISDEXAMFETAMINE DIMESYLATE [Concomitant]
  6. BACLOFEN [Concomitant]
  7. METHYLCOBALAMIN, N-ACETYLCYSTEINE, L-METHYLFOLATE [Concomitant]

REACTIONS (16)
  - Cholelithiasis [None]
  - Weight decreased [None]
  - Gastroenteritis viral [None]
  - Hepatic enzyme increased [None]
  - Dystonia [None]
  - Muscle spasms [None]
  - Pain [None]
  - Decreased appetite [None]
  - Tongue disorder [None]
  - Convulsion [None]
  - Amnesia [None]
  - Anger [None]
  - Head injury [None]
  - Concussion [None]
  - Pyrexia [None]
  - Diarrhoea [None]
